FAERS Safety Report 18013471 (Version 3)
Quarter: 2021Q3

REPORT INFORMATION
  Report Type: Report from Study
  Country: US (occurrence: US)
  Receive Date: 20200713
  Receipt Date: 20210902
  Transmission Date: 20211014
  Serious: Yes (Disabling)
  Sender: FDA-Public Use
  Company Number: US-SA-2020SA179733

PATIENT
  Age: 44 Year
  Sex: Female

DRUGS (3)
  1. DUPILUMAB [Suspect]
     Active Substance: DUPILUMAB
     Indication: DERMATITIS ATOPIC
     Dosage: 600 MG, 1X
     Route: 058
     Dates: start: 2019, end: 2019
  2. DUPILUMAB [Suspect]
     Active Substance: DUPILUMAB
     Dosage: 300 MG, QOW
     Route: 058
     Dates: end: 2021
  3. DUPILUMAB [Suspect]
     Active Substance: DUPILUMAB
     Dosage: UNK
     Dates: start: 202108

REACTIONS (7)
  - Rash [Unknown]
  - Product dose omission in error [Unknown]
  - In vitro fertilisation [Unknown]
  - Rash [Not Recovered/Not Resolved]
  - Impaired work ability [Not Recovered/Not Resolved]
  - Skin fissures [Not Recovered/Not Resolved]
  - Injection site haemorrhage [Unknown]
